FAERS Safety Report 24313073 (Version 1)
Quarter: 2024Q3

REPORT INFORMATION
  Report Type: Spontaneous
  Country: TR (occurrence: TR)
  Receive Date: 20240912
  Receipt Date: 20240912
  Transmission Date: 20241016
  Serious: Yes (Other)
  Sender: BIOMARIN
  Company Number: TR-BIOMARINAP-TR-2024-160313

PATIENT

DRUGS (1)
  1. VIMIZIM [Suspect]
     Active Substance: ELOSULFASE ALFA
     Indication: Mucopolysaccharidosis IV
     Dosage: UNK, QW
     Route: 065

REACTIONS (5)
  - Obstructive airways disorder [Recovered/Resolved]
  - Respiratory distress [Recovered/Resolved]
  - Hypercapnia [Recovered/Resolved]
  - Acidosis [Recovered/Resolved]
  - Joint laxity [Unknown]
